FAERS Safety Report 22037081 (Version 1)
Quarter: 2023Q1

REPORT INFORMATION
  Report Type: Spontaneous
  Country: US (occurrence: None)
  Receive Date: 20230223
  Receipt Date: 20230223
  Transmission Date: 20230418
  Serious: No
  Sender: FDA-Public Use
  Company Number: None

PATIENT
  Sex: Male

DRUGS (1)
  1. HUMIRA [Suspect]
     Active Substance: ADALIMUMAB
     Indication: Inflammatory bowel disease
     Dosage: 80 MG EVERY 7 DAYS SUBCUTANEOUS?
     Route: 058
     Dates: start: 20220816

REACTIONS (3)
  - Drug ineffective [None]
  - Inflammatory marker increased [None]
  - Blood iron decreased [None]
